FAERS Safety Report 5300732-7 (Version None)
Quarter: 2007Q2

REPORT INFORMATION
  Report Type: 
  Country: None (occurrence: None)
  Receive Date: 20070418
  Receipt Date: 20070413
  Transmission Date: 20071010
  Serious: Yes (Hospitalization)
  Sender: FDA-Public Use
  Company Number: US-BRACCO-BDI-009286

PATIENT
  Sex: Female

DRUGS (2)
  1. ISOVUE-128 [Suspect]
     Indication: MALIGNANT HYPERTENSION
     Route: 042
     Dates: start: 20070322, end: 20070322
  2. ISOVUE-128 [Suspect]
     Route: 042
     Dates: start: 20070322, end: 20070322

REACTIONS (3)
  - BLOOD SODIUM DECREASED [None]
  - CONFUSIONAL STATE [None]
  - TREMOR [None]
